FAERS Safety Report 6185385-0 (Version None)
Quarter: 2009Q2

REPORT INFORMATION
  Report Type: 
  Country: None (occurrence: None)
  Receive Date: 20090511
  Receipt Date: 20090428
  Transmission Date: 20091009
  Serious: Yes (Other)
  Sender: FDA-Public Use
  Company Number: JP-BAYER-200911363BYL

PATIENT
  Age: 63 Year
  Sex: Male
  Weight: 72 kg

DRUGS (5)
  1. FLUDARA [Suspect]
     Indication: ACUTE MYELOID LEUKAEMIA
     Dosage: AS USED: 25 MG/M2  UNIT DOSE: 50 MG
     Route: 042
     Dates: start: 20080528, end: 20080601
  2. ALKERAN [Concomitant]
     Indication: ACUTE MYELOID LEUKAEMIA
     Dosage: AS USED: 40 MG/M2
     Route: 042
     Dates: start: 20080531, end: 20080601
  3. CYLOCIDE [Concomitant]
     Indication: ACUTE MYELOID LEUKAEMIA
     Dosage: AS USED: 170 MG
     Route: 041
     Dates: start: 20080523, end: 20080527
  4. CONCENTRATED RED CELLS [Concomitant]
     Indication: PACKED RED BLOOD CELL TRANSFUSION
     Route: 042
     Dates: start: 20080611, end: 20080824
  5. PLATELETS [Concomitant]
     Indication: PLATELET TRANSFUSION
     Route: 042
     Dates: start: 20080604, end: 20080825

REACTIONS (1)
  - ACUTE GRAFT VERSUS HOST DISEASE [None]
